FAERS Safety Report 9731222 (Version 5)
Quarter: 2013Q4

REPORT INFORMATION
  Report Type: Report from Study
  Country: TR (occurrence: TR)
  Receive Date: 20131203
  Receipt Date: 20131217
  Transmission Date: 20140711
  Serious: Yes (Death)
  Sender: FDA-Public Use
  Company Number: TR-PFIZER INC-2013334384

PATIENT
  Age: 50 Year
  Sex: Male
  Weight: 75 kg

DRUGS (7)
  1. CORDARONE [Suspect]
     Dosage: 200 MG, DAILY
  2. BELOC [Suspect]
     Dosage: 100 MG, DAILY
  3. ASPIRIN ^BAYER^ [Suspect]
     Indication: CARDIAC FAILURE
     Dosage: 100 MG, UNK
  4. RYTMONORM [Suspect]
     Dosage: 300 MG, UNK
  5. COUMADIN [Suspect]
     Dosage: 5 MG, DAILY
  6. DIGOKSIN [Suspect]
     Dosage: 0.125 MG, 1X/DAY
  7. ASPIRIN [Concomitant]
     Indication: CARDIAC FAILURE

REACTIONS (1)
  - Death [Fatal]
